FAERS Safety Report 8958788 (Version 1)
Quarter: 2012Q4

REPORT INFORMATION
  Report Type: 
  Country: GB (occurrence: GB)
  Receive Date: 20121212
  Receipt Date: 20121212
  Transmission Date: 20130627
  Serious: Yes (Other)
  Sender: FDA-Public Use
  Company Number: GB-ELI_LILLY_AND_COMPANY-GB201211009085

PATIENT
  Age: 67 Year
  Sex: Female

DRUGS (4)
  1. FLUOXETINE [Suspect]
     Dosage: 1 DF, unknown
  2. LANSOPRAZOLE [Concomitant]
     Indication: GASTROOESOPHAGEAL REFLUX DISEASE
     Dosage: 15 mg, qd
     Dates: start: 2009
  3. LANSOPRAZOLE [Concomitant]
     Dosage: 30 mg, qd
     Dates: start: 2012
  4. CORTICOSTEROIDS [Concomitant]
     Indication: DYSPNOEA
     Dosage: 1 DF, unknown
     Route: 055

REACTIONS (7)
  - Dizziness [Unknown]
  - Vitamin D deficiency [Unknown]
  - Arthritis [Unknown]
  - Unevaluable event [Unknown]
  - Malaise [Unknown]
  - Fatigue [Unknown]
  - Headache [Unknown]
